FAERS Safety Report 14329348 (Version 1)
Quarter: 2017Q4

REPORT INFORMATION
  Report Type: Spontaneous
  Country: US (occurrence: US)
  Receive Date: 20171227
  Receipt Date: 20171227
  Transmission Date: 20180321
  Serious: Yes (Other)
  Sender: FDA-Public Use
  Company Number: US-MYLANLABS-2017M1078963

PATIENT
  Age: 33 Year
  Sex: Female

DRUGS (3)
  1. ACARBOSE. [Suspect]
     Active Substance: ACARBOSE
     Indication: TYPE 2 DIABETES MELLITUS
     Dosage: 50MG THREE TIMES A DAY WITH MEALS
     Route: 065
  2. CANAGLIFLOZIN [Suspect]
     Active Substance: CANAGLIFLOZIN
     Dosage: DAILY
     Route: 065
  3. CANAGLIFLOZIN [Suspect]
     Active Substance: CANAGLIFLOZIN
     Indication: TYPE 2 DIABETES MELLITUS
     Dosage: INITIAL DOSE NOT STATED
     Route: 065

REACTIONS (3)
  - Condition aggravated [Unknown]
  - Lactic acidosis [Unknown]
  - Hypoglycaemia [Recovered/Resolved]
